FAERS Safety Report 5623964-7 (Version None)
Quarter: 2008Q1

REPORT INFORMATION
  Report Type: 
  Country: None (occurrence: None)
  Receive Date: 20080131
  Receipt Date: 20080118
  Transmission Date: 20080703
  Serious: Yes (Other)
  Sender: FDA-Public Use
  Company Number: AEUSA200700278

PATIENT
  Age: 53 Year
  Sex: Female
  Weight: 88.4514 kg

DRUGS (9)
  1. GAMUNEX [Suspect]
     Indication: IMMUNODEFICIENCY COMMON VARIABLE
     Dosage: 30 GM; Q3W; IV
     Route: 042
  2. SOLU-MEDROL [Concomitant]
  3. BENADRYL /01563701/ [Concomitant]
  4. PRILOSEC [Concomitant]
  5. VERAPAMIL [Concomitant]
  6. ASPIRIN [Concomitant]
  7. ALBUTEROL [Concomitant]
  8. SYMBICORT [Concomitant]
  9. DICYCLOMINE /00068601/ [Concomitant]

REACTIONS (12)
  - ASTHMA [None]
  - CHILLS [None]
  - CONDITION AGGRAVATED [None]
  - DEHYDRATION [None]
  - HEADACHE [None]
  - HYPERHIDROSIS [None]
  - INCORRECT DRUG ADMINISTRATION RATE [None]
  - LETHARGY [None]
  - MYALGIA [None]
  - NASOPHARYNGITIS [None]
  - PALPITATIONS [None]
  - REFUSAL OF TREATMENT BY PATIENT [None]
